FAERS Safety Report 25692943 (Version 1)
Quarter: 2025Q3

REPORT INFORMATION
  Report Type: Spontaneous
  Country: US (occurrence: US)
  Receive Date: 20250818
  Receipt Date: 20250818
  Transmission Date: 20251021
  Serious: Yes (Other)
  Sender: GENMAB
  Company Number: US-GENMAB-2025-02465

PATIENT
  Sex: Male

DRUGS (1)
  1. EPKINLY [Suspect]
     Active Substance: EPCORITAMAB-BYSP
     Indication: Diffuse large B-cell lymphoma
     Dosage: 48 MILLIGRAM 1Q4W (EVERY 4 WEEKS)
     Route: 065

REACTIONS (2)
  - Mucormycosis [Recovering/Resolving]
  - Infection [Unknown]
